FAERS Safety Report 4464734-5 (Version None)
Quarter: 2004Q3

REPORT INFORMATION
  Report Type: 
  Country: None (occurrence: None)
  Receive Date: 20040928
  Receipt Date: 20040928
  Transmission Date: 20050211
  Serious: Yes (Hospitalization)
  Sender: FDA-Public Use
  Company Number: None

PATIENT
  Sex: Male

DRUGS (17)
  1. HUMULIN N [Suspect]
     Indication: DIABETES MELLITUS
  2. POTASSIUM [Concomitant]
  3. COMBIVENT [Concomitant]
  4. MAGNESIUM OXIDE [Concomitant]
  5. TRAZODONE HCL [Concomitant]
  6. SENNA [Concomitant]
  7. SALSALATE [Concomitant]
  8. LISINOPRIL [Concomitant]
  9. LEVOTHYROXINE SODIUM [Concomitant]
  10. FUROSEMIDE [Concomitant]
  11. FERROUS SULFATE TAB [Concomitant]
  12. CARVEDILOL [Concomitant]
  13. ASPIRIN [Concomitant]
  14. APAP TAB [Concomitant]
  15. LEVOFLOXACIN [Concomitant]
  16. METRONIDAZOLE [Concomitant]
  17. VANCOMYCIN [Concomitant]

REACTIONS (2)
  - COMA [None]
  - HYPOGLYCAEMIA [None]
